FAERS Safety Report 16527379 (Version 5)
Quarter: 2025Q3

REPORT INFORMATION
  Report Type: Spontaneous
  Country: EU (occurrence: EU)
  Receive Date: 20190704
  Receipt Date: 20250923
  Transmission Date: 20251021
  Serious: Yes (Hospitalization, Congenital Anomaly, Other)
  Sender: TAKEDA
  Company Number: EU-TAKEDA-2019TUS041219

PATIENT
  Age: 15 Day
  Sex: Male

DRUGS (3)
  1. ICLUSIG [Suspect]
     Active Substance: PONATINIB HYDROCHLORIDE
     Indication: Chronic myeloid leukaemia
     Dosage: 30 MILLIGRAM, QD
     Route: 064
     Dates: start: 20170330, end: 20180503
  2. ICLUSIG [Suspect]
     Active Substance: PONATINIB HYDROCHLORIDE
     Dosage: 30 MILLIGRAM, QD
     Route: 064
     Dates: start: 20170407, end: 20180503
  3. CITALOPRAM [Concomitant]
     Active Substance: CITALOPRAM
     Indication: Product used for unknown indication
     Route: 064

REACTIONS (4)
  - Congenital megacolon [Recovered/Resolved with Sequelae]
  - Foetal exposure during pregnancy [Recovered/Resolved with Sequelae]
  - Infection [Unknown]
  - Dyschezia [Unknown]

NARRATIVE: CASE EVENT DATE: 20180301
